FAERS Safety Report 4939579-X (Version None)
Quarter: 2006Q1

REPORT INFORMATION
  Report Type: 
  Country: None (occurrence: None)
  Receive Date: 20060306
  Receipt Date: 20060224
  Transmission Date: 20060701
  Serious: Yes (Hospitalization, Other)
  Sender: FDA-Public Use
  Company Number: 028-20785-03120516

PATIENT
  Age: 61 Year
  Sex: Male

DRUGS (16)
  1. THALIDOMIDE (THALIDOMIDE) (50 MILLIGRAM, CAPSULES) [Suspect]
     Indication: MULTIPLE MYELOMA
     Dosage: SEE IMAGE
     Route: 048
     Dates: start: 20000920, end: 20001004
  2. THALIDOMIDE (THALIDOMIDE) (50 MILLIGRAM, CAPSULES) [Suspect]
     Indication: MULTIPLE MYELOMA
     Dosage: SEE IMAGE
     Route: 048
     Dates: start: 20001005, end: 20010125
  3. THALIDOMIDE (THALIDOMIDE) (50 MILLIGRAM, CAPSULES) [Suspect]
     Indication: MULTIPLE MYELOMA
     Dosage: SEE IMAGE
     Route: 048
     Dates: start: 20010129
  4. THALIDOMIDE (THALIDOMIDE) (50 MILLIGRAM, CAPSULES) [Suspect]
     Indication: MULTIPLE MYELOMA
     Dosage: SEE IMAGE
     Route: 048
     Dates: start: 20060214
  5. THALIDOMIDE (THALIDOMIDE) (50 MILLIGRAM, CAPSULES) [Suspect]
  6. THALIDOMIDE (THALIDOMIDE) (50 MILLIGRAM, CAPSULES) [Suspect]
  7. PAMIDRONATE DISODIUM [Concomitant]
  8. IMMUNE GLOBULIN INTRAVENOUS (HUMAN) [Concomitant]
  9. LISINOPRIL [Concomitant]
  10. VERAPAMIL [Concomitant]
  11. RAMIPRIL [Concomitant]
  12. ANTIHYPERTENSIVES [Concomitant]
  13. METFORMIN [Concomitant]
  14. AVANDIA [Concomitant]
  15. CHRONOVERA (VERAPAMIL) [Concomitant]
  16. FENO MICRO (FENOFIBRATE) [Concomitant]

REACTIONS (9)
  - CANDIDIASIS [None]
  - DIFFICULTY IN WALKING [None]
  - GLOMERULONEPHRITIS [None]
  - LABORATORY TEST ABNORMAL [None]
  - LYMPHOMA [None]
  - NEPHROTIC SYNDROME [None]
  - PERIPHERAL SENSORY NEUROPATHY [None]
  - PNEUMONIA [None]
  - URINARY RETENTION [None]
